FAERS Safety Report 10148888 (Version 2)
Quarter: 2014Q2

REPORT INFORMATION
  Report Type: Spontaneous
  Country: US (occurrence: US)
  Receive Date: 20140502
  Receipt Date: 20140526
  Transmission Date: 20141212
  Serious: Yes (Hospitalization)
  Sender: FDA-Public Use
  Company Number: US-BIOGENIDEC-2014BI037823

PATIENT
  Age: 40 Year
  Sex: Female

DRUGS (7)
  1. TECFIDERA [Suspect]
     Indication: MULTIPLE SCLEROSIS
     Route: 048
     Dates: start: 20131106
  2. TECFIDERA [Suspect]
     Indication: MULTIPLE SCLEROSIS
     Route: 048
     Dates: start: 20131224
  3. OXYCODONE [Concomitant]
  4. LYRICA [Concomitant]
  5. HUMALOG [Concomitant]
  6. REGLAN [Concomitant]
  7. ZOFRAN [Concomitant]

REACTIONS (8)
  - Impaired gastric emptying [Not Recovered/Not Resolved]
  - Aphasia [Unknown]
  - Unresponsive to stimuli [Unknown]
  - Dehydration [Unknown]
  - Blood glucose increased [Unknown]
  - Vomiting [Not Recovered/Not Resolved]
  - Nausea [Not Recovered/Not Resolved]
  - Anaemia [Unknown]
